FAERS Safety Report 12842232 (Version 1)
Quarter: 2016Q4

REPORT INFORMATION
  Report Type: Spontaneous
  Country: NL (occurrence: NL)
  Receive Date: 20161013
  Receipt Date: 20161013
  Transmission Date: 20170207
  Serious: Yes (Other)
  Sender: FDA-Public Use
  Company Number: NL-ASTRAZENECA-2016SF06812

PATIENT
  Age: 21384 Day
  Sex: Male
  Weight: 99 kg

DRUGS (1)
  1. CRESTOR [Suspect]
     Active Substance: ROSUVASTATIN CALCIUM
     Indication: HYPERCHOLESTEROLAEMIA
     Route: 048
     Dates: start: 20140401

REACTIONS (2)
  - Muscle spasms [Recovered/Resolved]
  - Muscle rupture [Recovered/Resolved]

NARRATIVE: CASE EVENT DATE: 20160902
